FAERS Safety Report 8212819-X (Version None)
Quarter: 2012Q1

REPORT INFORMATION
  Report Type: 
  Country: None (occurrence: None)
  Receive Date: 20120315
  Receipt Date: 20120307
  Transmission Date: 20120608
  Serious: Yes (Other)
  Sender: FDA-Public Use
  Company Number: PHHY2012GB019692

PATIENT
  Age: 81 Year
  Sex: Female
  Weight: 81 kg

DRUGS (14)
  1. LISINOPRIL [Concomitant]
     Dosage: UNK
     Dates: start: 20111115
  2. AMOXICILLIN AND CLAVULANATE POTASSIUM [Concomitant]
     Dosage: UNK
     Dates: start: 20120224
  3. AMOXICILLIN AND CLAVULANATE POTASSIUM [Concomitant]
     Dosage: UNK
     Dates: start: 20111229, end: 20120112
  4. QVAR 40 [Concomitant]
     Dosage: UNK
     Dates: start: 20111115, end: 20111213
  5. SALBUTAMOL [Concomitant]
     Dosage: UNK
     Dates: start: 20111115, end: 20111213
  6. LERCANIDIPINE [Interacting]
     Dosage: UNK
     Dates: start: 20111115
  7. SIMVASTATIN [Concomitant]
     Dosage: UNK
     Dates: start: 20111115
  8. ALLOPURINOL [Concomitant]
     Dosage: UNK
     Dates: start: 20111115
  9. ASPIRIN [Concomitant]
     Dosage: UNK
     Dates: start: 20120224
  10. SALBUTAMOL [Concomitant]
     Dosage: UNK
     Dates: start: 20120215
  11. CLARITHROMYCIN [Suspect]
     Dosage: UNK
     Dates: start: 20120224
  12. ATENOLOL [Concomitant]
     Dosage: UNK
     Dates: start: 20111115
  13. QVAR 40 [Concomitant]
     Dosage: UNK
     Dates: start: 20120215
  14. DOXAZOSIN MESYLATE [Concomitant]
     Dosage: UNK
     Dates: start: 20111115

REACTIONS (3)
  - HYPOTENSION [None]
  - DRUG INTERACTION [None]
  - ATRIAL FIBRILLATION [None]
